FAERS Safety Report 10221282 (Version 1)
Quarter: 2014Q2

REPORT INFORMATION
  Report Type: Spontaneous
  Country: US (occurrence: US)
  Receive Date: 20140606
  Receipt Date: 20140606
  Transmission Date: 20141212
  Serious: No
  Sender: FDA-Public Use
  Company Number: US-BANPHARM-20142560

PATIENT
  Age: 29 Year
  Sex: Female

DRUGS (1)
  1. PROGESTERONE CAPSULES 200 MG [Suspect]
     Indication: INFERTILITY
     Dosage: 200 MG, BID,
     Route: 067
     Dates: start: 201404, end: 20140412

REACTIONS (3)
  - Vaginal discharge [Recovered/Resolved]
  - Incorrect route of drug administration [Recovered/Resolved]
  - Off label use [Recovered/Resolved]
